FAERS Safety Report 13464630 (Version 1)
Quarter: 2017Q2

REPORT INFORMATION
  Report Type: Spontaneous
  Country: US (occurrence: US)
  Receive Date: 20170420
  Receipt Date: 20170420
  Transmission Date: 20170830
  Serious: Yes (Other)
  Sender: FDA-Public Use
  Company Number: US-ROCHE-701328

PATIENT
  Age: 32 Year
  Sex: Female
  Weight: 69.9 kg

DRUGS (3)
  1. ACCUTANE [Suspect]
     Active Substance: ISOTRETINOIN
     Indication: ACNE CYSTIC
     Route: 065
  2. ACCUTANE [Suspect]
     Active Substance: ISOTRETINOIN
     Route: 065
  3. ACCUTANE [Suspect]
     Active Substance: ISOTRETINOIN
     Route: 065

REACTIONS (11)
  - Arthralgia [Unknown]
  - Headache [Recovered/Resolved]
  - Conjunctivitis [Unknown]
  - Xerosis [Unknown]
  - Angular cheilitis [Unknown]
  - Inflammatory bowel disease [Unknown]
  - Gastrointestinal injury [Unknown]
  - Back pain [Unknown]
  - Colitis ulcerative [Unknown]
  - Acne [Unknown]
  - Eczema nummular [Unknown]

NARRATIVE: CASE EVENT DATE: 19961002
